FAERS Safety Report 24291809 (Version 3)
Quarter: 2024Q4

REPORT INFORMATION
  Report Type: Report from Study
  Country: KR (occurrence: KR)
  Receive Date: 20240906
  Receipt Date: 20241003
  Transmission Date: 20250114
  Serious: No
  Sender: BRISTOL MYERS SQUIBB
  Company Number: KR-BRISTOL-MYERS SQUIBB COMPANY-2024-140171

PATIENT
  Age: 69 Year
  Sex: Male

DRUGS (1)
  1. INREBIC [Suspect]
     Active Substance: FEDRATINIB HYDROCHLORIDE
     Indication: Product used for unknown indication

REACTIONS (1)
  - Vitamin B1 decreased [Recovered/Resolved]

NARRATIVE: CASE EVENT DATE: 20240806
